FAERS Safety Report 11743534 (Version 9)
Quarter: 2019Q1

REPORT INFORMATION
  Report Type: Spontaneous
  Country: US (occurrence: US)
  Receive Date: 20151116
  Receipt Date: 20190322
  Transmission Date: 20190417
  Serious: Yes (Congenital Anomaly, Other)
  Sender: FDA-Public Use
  Company Number: PHEH2015US023579

PATIENT
  Sex: Male

DRUGS (2)
  1. ONDANSETRON TEVA//ONDANSETRON [Suspect]
     Active Substance: ONDANSETRON
     Indication: FOETAL EXPOSURE DURING PREGNANCY
     Dosage: MOTHER^S DOSE: 4 MG, PRN
     Route: 064
  2. ZOFRAN [Suspect]
     Active Substance: ONDANSETRON HYDROCHLORIDE
     Indication: FOETAL EXPOSURE DURING PREGNANCY
     Route: 064

REACTIONS (16)
  - Neonatal infection [Unknown]
  - Gastrooesophageal reflux disease [Unknown]
  - Foetal growth restriction [Unknown]
  - Otitis media chronic [Unknown]
  - Adenoiditis [Unknown]
  - Selective eating disorder [Unknown]
  - Emotional distress [Unknown]
  - Pain [Unknown]
  - Anhedonia [Unknown]
  - Anxiety [Unknown]
  - Cleft palate [Unknown]
  - Foetal exposure during pregnancy [Unknown]
  - Failure to thrive [Unknown]
  - Injury [Unknown]
  - Congenital anomaly [Unknown]
  - Upper respiratory tract infection [Unknown]
